FAERS Safety Report 17101776 (Version 1)
Quarter: 2019Q4

REPORT INFORMATION
  Report Type: Report from Study
  Country: AR (occurrence: AR)
  Receive Date: 20191202
  Receipt Date: 20191202
  Transmission Date: 20200122
  Serious: Yes (Other)
  Sender: FDA-Public Use
  Company Number: AR-BAYER-2019-213383

PATIENT
  Sex: Female

DRUGS (2)
  1. NEXAVAR [Suspect]
     Active Substance: SORAFENIB
     Indication: HEPATOCELLULAR CARCINOMA
     Dosage: UNK
     Dates: start: 20180319
  2. EUCERIN [SALICYLIC ACID] [Concomitant]
     Dosage: UNK

REACTIONS (4)
  - Unevaluable event [Not Recovered/Not Resolved]
  - Gait disturbance [None]
  - Abdominal pain [None]
  - Hyperkeratosis [Not Recovered/Not Resolved]
